FAERS Safety Report 16505366 (Version 1)
Quarter: 2019Q3

REPORT INFORMATION
  Report Type: Spontaneous
  Country: CN (occurrence: CN)
  Receive Date: 20190701
  Receipt Date: 20190701
  Transmission Date: 20191004
  Serious: Yes (Other)
  Sender: FDA-Public Use
  Company Number: CN-009507513-1906CHN009214

PATIENT
  Age: 39 Year
  Sex: Male
  Weight: 60 kg

DRUGS (6)
  1. SODIUM CHLORIDE. [Concomitant]
     Active Substance: SODIUM CHLORIDE
     Dosage: 100 MILLILITER, TID
     Route: 041
     Dates: start: 20190603, end: 20190609
  2. TARGOCID [Suspect]
     Active Substance: TEICOPLANIN
     Indication: SEPSIS
  3. TIENAM [Suspect]
     Active Substance: CILASTATIN SODIUM\IMIPENEM
     Indication: PNEUMONIA
     Dosage: 0.5 GRAM, TID
     Route: 041
     Dates: start: 20190603, end: 20190609
  4. TARGOCID [Suspect]
     Active Substance: TEICOPLANIN
     Indication: PNEUMONIA
     Dosage: 0.4 GRAM, QOD
     Route: 041
     Dates: start: 20190603, end: 20190609
  5. SODIUM CHLORIDE. [Concomitant]
     Active Substance: SODIUM CHLORIDE
     Dosage: 100 MILLILITER, QOD
     Route: 041
     Dates: start: 20190603, end: 20190609
  6. TIENAM [Suspect]
     Active Substance: CILASTATIN SODIUM\IMIPENEM
     Indication: SEPSIS

REACTIONS (1)
  - Bacterial diarrhoea [Recovering/Resolving]

NARRATIVE: CASE EVENT DATE: 20190607
